FAERS Safety Report 4696872-6 (Version None)
Quarter: 2005Q2

REPORT INFORMATION
  Report Type: 
  Country: None (occurrence: None)
  Receive Date: 20050622
  Receipt Date: 20050620
  Transmission Date: 20051028
  Serious: Yes (Other)
  Sender: FDA-Public Use
  Company Number: PHBS2005BR08768

PATIENT
  Age: 5 Year
  Sex: Female
  Weight: 19 kg

DRUGS (5)
  1. FLUTICASONE W/SALMETEROL [Suspect]
     Indication: ASTHMA
     Dosage: UNK, ONCE/SINGLE
  2. BUDESONIDE [Concomitant]
     Indication: ASTHMA
  3. FORADIL [Suspect]
     Dosage: UNK, BID
     Dates: start: 20040101, end: 20050601
  4. FORADIL [Suspect]
     Indication: ASTHMA
     Dosage: UNK, ONCE/SINGLE
     Dates: start: 20040101, end: 20040101
  5. FLUTICASONE PROPIONATE [Concomitant]
     Dates: end: 20050201

REACTIONS (9)
  - ASTHENIA [None]
  - CARDIAC ARREST [None]
  - COUGH [None]
  - DYSPNOEA [None]
  - HEART RATE INCREASED [None]
  - HYPERSENSITIVITY [None]
  - MEDICATION ERROR [None]
  - SKIN DISCOLOURATION [None]
  - THROAT IRRITATION [None]
